FAERS Safety Report 8039353-4 (Version None)
Quarter: 2012Q1

REPORT INFORMATION
  Report Type: 
  Country: None (occurrence: None)
  Receive Date: 20120111
  Receipt Date: 20111211
  Transmission Date: 20120608
  Serious: No
  Sender: FDA-Public Use
  Company Number: US-AMGEN-USASP2011065999

PATIENT
  Age: 54 Year
  Sex: Male

DRUGS (2)
  1. HUMIRA [Concomitant]
  2. ENBREL [Suspect]
     Indication: PSORIATIC ARTHROPATHY
     Dosage: 50 MG, QWK
     Dates: start: 20090821

REACTIONS (4)
  - THERAPEUTIC RESPONSE DECREASED [None]
  - INCORRECT STORAGE OF DRUG [None]
  - JOINT STIFFNESS [None]
  - ARTHRALGIA [None]
